FAERS Safety Report 16402544 (Version 4)
Quarter: 2020Q1

REPORT INFORMATION
  Report Type: Report from Study
  Country: None (occurrence: US)
  Receive Date: 20190607
  Receipt Date: 20200115
  Transmission Date: 20200409
  Serious: Yes (Hospitalization)
  Sender: FDA-Public Use
  Company Number: US-ABBVIE-19K-163-2809868-00

PATIENT
  Age: 47 Year
  Sex: Male
  Weight: 66.74 kg

DRUGS (3)
  1. HUMIRA [Suspect]
     Active Substance: ADALIMUMAB
     Route: 058
     Dates: start: 201906
  2. ELIQUIS [Suspect]
     Active Substance: APIXABAN
     Indication: ULCER HAEMORRHAGE
     Dosage: FOR TWO DAYS
     Route: 065
     Dates: start: 20190508, end: 2019
  3. HUMIRA [Suspect]
     Active Substance: ADALIMUMAB
     Indication: PSORIATIC ARTHROPATHY
     Route: 058
     Dates: start: 20180618, end: 201905

REACTIONS (3)
  - Ulcer haemorrhage [Recovered/Resolved]
  - Pulmonary embolism [Unknown]
  - Chest discomfort [Recovered/Resolved]

NARRATIVE: CASE EVENT DATE: 201806
